FAERS Safety Report 19427594 (Version 1)
Quarter: 2021Q2

REPORT INFORMATION
  Report Type: Spontaneous
  Country: US (occurrence: US)
  Receive Date: 20210616
  Receipt Date: 20210616
  Transmission Date: 20210717
  Serious: Yes (Hospitalization)
  Sender: FDA-Public Use
  Company Number: None

PATIENT
  Sex: Male

DRUGS (3)
  1. TACROLIMUS 1MG CAP [Suspect]
     Active Substance: TACROLIMUS
     Indication: RENAL TRANSPLANT
     Dosage: ?          OTHER DOSE:1 CAP? 2CAPS;OTHER FREQUENCY:QAM?QPM;?
     Route: 048
     Dates: start: 20150605
  2. LASIX [Suspect]
     Active Substance: FUROSEMIDE
  3. MYCOPHENOLATE 250MG CAP [Suspect]
     Active Substance: MYCOPHENOLATE MOFETIL
     Indication: RENAL TRANSPLANT
     Route: 048
     Dates: start: 20150605

REACTIONS (1)
  - Hospitalisation [None]
